FAERS Safety Report 4379315-1 (Version None)
Quarter: 2004Q2

REPORT INFORMATION
  Report Type: 
  Country: None (occurrence: None)
  Receive Date: 20040617
  Receipt Date: 20040611
  Transmission Date: 20050107
  Serious: Yes (Other)
  Sender: FDA-Public Use
  Company Number: 200415977GDDC

PATIENT
  Age: 74 Year
  Sex: Male

DRUGS (2)
  1. LOVENOX [Suspect]
     Route: 042
     Dates: start: 20040611, end: 20040611
  2. MULTIVITAMINS W/MINERALS [Concomitant]
     Indication: MACULAR DEGENERATION
     Dosage: DOSE: 1 TABLET
     Route: 048

REACTIONS (5)
  - ANGINA UNSTABLE [None]
  - ARRHYTHMIA [None]
  - BRADYCARDIA [None]
  - MEDICATION ERROR [None]
  - MYOCARDIAL INFARCTION [None]
